FAERS Safety Report 6324473-2 (Version None)
Quarter: 2009Q3

REPORT INFORMATION
  Report Type: 
  Country: None (occurrence: None)
  Receive Date: 20090820
  Receipt Date: 20090810
  Transmission Date: 20100115
  Serious: Yes (Other)
  Sender: FDA-Public Use
  Company Number: 236404K09USA

PATIENT
  Age: 36 Year
  Sex: Female

DRUGS (3)
  1. REBIF [Suspect]
     Indication: MULTIPLE SCLEROSIS
     Dosage: 44 MCG, 3 IN 1 WEEKS, SUBCUTANEOUS
     Route: 058
     Dates: start: 20090508
  2. HYDROCORTISONE (HYDROCORTISONE /00028601/) [Concomitant]
  3. TYLENOL [Concomitant]

REACTIONS (3)
  - GALLBLADDER DISORDER [None]
  - NAUSEA [None]
  - PAIN [None]
